FAERS Safety Report 4838279-4 (Version None)
Quarter: 2005Q4

REPORT INFORMATION
  Report Type: 
  Country: None (occurrence: None)
  Receive Date: 20051128
  Receipt Date: 20030616
  Transmission Date: 20060501
  Serious: Yes (Other)
  Sender: FDA-Public Use
  Company Number: PHFR2003GB02432

PATIENT
  Age: 83 Year
  Sex: Female

DRUGS (7)
  1. DIOVAN [Suspect]
     Indication: HYPERTENSION
     Dosage: 40 MG, QD
     Route: 048
     Dates: start: 20020201
  2. ASPIRIN [Concomitant]
     Dosage: 150 MG, QD
     Route: 065
  3. CO-AMILOFRUSE [Concomitant]
     Dosage: 2 UKN, QD
     Route: 065
  4. BISACODYL [Concomitant]
     Dosage: 5 MG 2ON
     Route: 065
  5. CO-PROXAMOL [Concomitant]
     Dosage: UNK, PRN
     Route: 065
  6. FERROUS SULFATE TAB [Concomitant]
     Dosage: 325 MG, QD
     Route: 065
  7. QUININE SULPHATE [Concomitant]
     Dosage: UNK, UNK
     Route: 065

REACTIONS (2)
  - PARAESTHESIA [None]
  - PERIPHERAL COLDNESS [None]
